FAERS Safety Report 13664759 (Version 1)
Quarter: 2017Q2

REPORT INFORMATION
  Report Type: Spontaneous
  Country: US (occurrence: US)
  Receive Date: 20170619
  Receipt Date: 20170619
  Transmission Date: 20170830
  Serious: Yes (Other)
  Sender: FDA-Public Use
  Company Number: US-SMITH AND NEPHEW, INC-2017SMT00427

PATIENT
  Age: 66 Year
  Sex: Male
  Weight: 136.5 kg

DRUGS (13)
  1. VITAMIN D3 [Concomitant]
     Active Substance: CHOLECALCIFEROL
  2. HYDROMORPHONE [Concomitant]
     Active Substance: HYDROMORPHONE
  3. SUPER B COMPLEX [Concomitant]
     Active Substance: CYANOCOBALAMIN\DEXPANTHENOL\NIACINAMIDE\PYRIDOXINE HYDROCHLORIDE\RIBOFLAVIN 5^-PHOSPHATE SODIUM\THIAMINE HYDROCHLORIDE\VITAMIN B COMPLEX
  4. LOPERAMIDE [Concomitant]
     Active Substance: LOPERAMIDE
  5. REGRANEX [Suspect]
     Active Substance: BECAPLERMIN
     Dosage: UNK, 1X/DAY FOR 12 HOURS ON AND 12 HOURS OFF
     Route: 061
     Dates: start: 20170601
  6. ADULT 50 COMPLETE VITAMIN [Concomitant]
  7. TRAZODONE [Concomitant]
     Active Substance: TRAZODONE HYDROCHLORIDE
     Dosage: UNK, 1X/DAY AT BEDTIME
  8. ALPRAZOLAM. [Concomitant]
     Active Substance: ALPRAZOLAM
  9. REGRANEX [Suspect]
     Active Substance: BECAPLERMIN
     Indication: DIABETIC ULCER
     Dosage: UNK
     Route: 061
  10. AMLODIPINE [Concomitant]
     Active Substance: AMLODIPINE BESYLATE
  11. GLIPIZIDE. [Concomitant]
     Active Substance: GLIPIZIDE
  12. CLINDAMYCIN. [Concomitant]
     Active Substance: CLINDAMYCIN
  13. CEPHALEXIN. [Concomitant]
     Active Substance: CEPHALEXIN

REACTIONS (8)
  - Wound [Recovering/Resolving]
  - Blood glucose increased [Unknown]
  - Wound complication [Unknown]
  - Toe amputation [Recovered/Resolved with Sequelae]
  - Wound infection staphylococcal [Unknown]
  - Wound necrosis [Recovered/Resolved]
  - Hallucination [Recovered/Resolved]
  - Pain [Not Recovered/Not Resolved]

NARRATIVE: CASE EVENT DATE: 20170601
